FAERS Safety Report 8172302-7 (Version None)
Quarter: 2012Q1

REPORT INFORMATION
  Report Type: 
  Country: None (occurrence: None)
  Receive Date: 20120229
  Receipt Date: 20120221
  Transmission Date: 20120608
  Serious: No
  Sender: FDA-Public Use
  Company Number: US-BIOGENIDEC-2012BI006470

PATIENT
  Age: 47 Year
  Sex: Female

DRUGS (5)
  1. BIRTH CONTROL PILL [Concomitant]
     Dates: start: 19990101
  2. TYSABRI [Suspect]
     Indication: MULTIPLE SCLEROSIS
     Route: 042
  3. TYSABRI [Suspect]
     Route: 042
     Dates: start: 20110513
  4. MIGRAINE MEDICATION (NOS) [Concomitant]
     Indication: MIGRAINE
  5. ASPIRIN [Concomitant]

REACTIONS (2)
  - MIGRAINE [None]
  - VAGINAL HAEMORRHAGE [None]
